FAERS Safety Report 4455004-X (Version None)
Quarter: 2004Q3

REPORT INFORMATION
  Report Type: 
  Country: None (occurrence: None)
  Receive Date: 20040825
  Receipt Date: 20040517
  Transmission Date: 20050211
  Serious: No
  Sender: FDA-Public Use
  Company Number: 206591

PATIENT
  Age: 46 Year
  Sex: Male

DRUGS (1)
  1. RAPTIVA [Suspect]
     Indication: PSORIASIS
     Dosage: 1.4 ML, SUBCUTANEOUS
     Route: 058
     Dates: start: 20040508

REACTIONS (2)
  - ARTHRALGIA [None]
  - HEADACHE [None]
